FAERS Safety Report 9189015 (Version 1)
Quarter: 2013Q1

REPORT INFORMATION
  Report Type: Spontaneous
  Country: IT (occurrence: IT)
  Receive Date: 20130326
  Receipt Date: 20130326
  Transmission Date: 20140127
  Serious: Yes (Hospitalization)
  Sender: FDA-Public Use
  Company Number: PHHY2013IT027399

PATIENT
  Age: 40 Year
  Sex: Female

DRUGS (3)
  1. AMOXICILLIN + CLAVULANATE POTASSIUM [Suspect]
     Dosage: 2 G, DAILY
     Route: 048
     Dates: start: 20130304
  2. PARACETAMOL [Suspect]
     Dosage: 1 G, PRN
     Route: 048
     Dates: start: 20130304
  3. PARACODINA [Suspect]
     Dosage: 60 GTT, DAILY
     Route: 048
     Dates: start: 20130304

REACTIONS (2)
  - Urticaria [Not Recovered/Not Resolved]
  - Drug eruption [Not Recovered/Not Resolved]
